FAERS Safety Report 7930597-6 (Version None)
Quarter: 2011Q4

REPORT INFORMATION
  Report Type: 
  Country: None (occurrence: None)
  Receive Date: 20111121
  Receipt Date: 20111117
  Transmission Date: 20120403
  Serious: Yes (Death)
  Sender: FDA-Public Use
  Company Number: DE-ROCHE-648350

PATIENT
  Age: 61 Year
  Sex: Female

DRUGS (15)
  1. CYCLOSPORINE [Concomitant]
  2. ALENDRONSAEURE [Concomitant]
     Dosage: DRUG NAME REPORTED AS: ALENDRONSAURE
  3. CINACALCET [Concomitant]
     Dosage: DRUG NAME REPORTED AS: CINACALCEPT
  4. ERGOCALCIFEROL [Concomitant]
     Dosage: DRUG NAME REPORTED AS: VIGANTOLELETTEN, TOTAL DAILY DOSE/UNIT: 500 IE
  5. AMLODIPINE [Concomitant]
  6. VALCYTE [Suspect]
     Indication: ANTIVIRAL PROPHYLAXIS
     Dosage: FREQUENCY REPORTED AS: 1X
     Route: 048
  7. PRAVASTATIN [Concomitant]
  8. OMEPRAZOLE [Concomitant]
     Dosage: DRUG NAME REPORTED AS OMEPRAZOL
  9. PREDNISONE TAB [Concomitant]
     Dosage: DRUG NAME REPORTED AS: PREDNISON (INTERMITTANT), TOTAL DAILY DOSE/ UNIT REPORTED AS: 5/2.5 MG
  10. MAGNESIUM [Concomitant]
     Dosage: TOTAL DAILY DOSE/ UNIT REPORTED AS: 2 TBL.
  11. MYCOPHENOLATE MOFETIL [Concomitant]
  12. FUROSEMIDE [Concomitant]
     Dosage: DRUG NAME REPORTED AS: FUROSEMID
  13. REPAGLINIDE [Concomitant]
     Dosage: DRUG NAME REPORTED AS: RAPAGLINIDE
  14. LEVOTHYROXINE SODIUM [Concomitant]
     Dosage: DRUG NAME REPORTED AS: LEVOTHYROXIN
  15. METOPROLOL TARTRATE [Concomitant]

REACTIONS (1)
  - DEATH [None]
